FAERS Safety Report 13997524 (Version 2)
Quarter: 2017Q3

REPORT INFORMATION
  Report Type: Spontaneous
  Country: US (occurrence: US)
  Receive Date: 20170921
  Receipt Date: 20170929
  Transmission Date: 20171128
  Serious: No
  Sender: FDA-Public Use
  Company Number: US-BIOMARINAP-US-2017-115437

PATIENT
  Age: 12 Year
  Sex: Female

DRUGS (1)
  1. VIMIZIM [Suspect]
     Active Substance: ELOSULFASE ALFA
     Indication: MUCOPOLYSACCHARIDOSIS IV
     Dosage: 44 MG, QW
     Route: 042
     Dates: start: 20141023

REACTIONS (3)
  - Pyrexia [Unknown]
  - Malaise [Unknown]
  - Nasopharyngitis [Unknown]
